FAERS Safety Report 9278536 (Version 1)
Quarter: 2013Q2

REPORT INFORMATION
  Report Type: Spontaneous
  Country: BR (occurrence: BR)
  Receive Date: 20130508
  Receipt Date: 20130508
  Transmission Date: 20140414
  Serious: Yes (Other)
  Sender: FDA-Public Use
  Company Number: BR-ASTRAZENECA-2013SE30751

PATIENT
  Age: 47 Year
  Sex: Female
  Weight: 56 kg

DRUGS (7)
  1. ATACAND COMB [Suspect]
     Dosage: DAILY
     Route: 048
     Dates: end: 201303
  2. SELOZOK [Suspect]
     Indication: HYPERTENSION
     Route: 048
     Dates: start: 2008
  3. DONAREN RETARD [Suspect]
     Indication: INSOMNIA
     Dates: start: 201301, end: 201304
  4. DONAREN RETARD [Suspect]
     Indication: RESTLESSNESS
     Dates: start: 201301, end: 201304
  5. CIPRO XR [Concomitant]
     Dates: start: 20130125
  6. ALPRAZOLAM [Concomitant]
     Indication: INSOMNIA
     Dosage: DAILY
     Dates: start: 2003
  7. CYMBALTA [Concomitant]
     Dates: start: 201204

REACTIONS (7)
  - Varicose vein [Not Recovered/Not Resolved]
  - Blood pressure increased [Not Recovered/Not Resolved]
  - Insomnia [Recovered/Resolved]
  - Restlessness [Recovered/Resolved]
  - Depressed mood [Recovered/Resolved]
  - Urinary tract infection [Recovering/Resolving]
  - Myalgia [Recovered/Resolved]
